FAERS Safety Report 24531407 (Version 1)
Quarter: 2024Q4

REPORT INFORMATION
  Report Type: Report from Study
  Country: MX (occurrence: MX)
  Receive Date: 20241022
  Receipt Date: 20241022
  Transmission Date: 20250114
  Serious: No
  Sender: ROCHE
  Company Number: MX-ROCHE-3511499

PATIENT
  Age: 3 Year
  Sex: Female
  Weight: 39.0 kg

DRUGS (19)
  1. PULMOZYME [Suspect]
     Active Substance: DORNASE ALFA
     Indication: Cystic fibrosis
     Route: 055
     Dates: start: 201012
  2. ACETYLCYSTEINE [Concomitant]
     Active Substance: ACETYLCYSTEINE
     Dosage: EVERY 8 HOURS OR 600 MG EFFERVESCENT TABLETS. HALF IN THE MORNING AND HALF IN THE?AFTERNOON TIOTROPI
  3. FLUTICASONE [Concomitant]
     Active Substance: FLUTICASONE
     Dosage: 1 PUFF
  4. SALMETEROL [Concomitant]
     Active Substance: SALMETEROL
     Dosage: 1 PUFF
  5. MONTELUKAST [Concomitant]
     Active Substance: MONTELUKAST
     Dosage: 3/4 TABLET
  6. ZINC [Concomitant]
     Active Substance: ZINC
  7. AMITRIPTYLINE [Concomitant]
     Active Substance: AMITRIPTYLINE
     Dosage: HALF TABLET OF 25MG
  8. CLARITHROMYCIN [Concomitant]
     Active Substance: CLARITHROMYCIN
     Dosage: MINIMIZE THE PRODUCTION OF ESTEREASES?MONDAY WEDNESDAY FRIDAY AND WITHOUT SUSPENDING
  9. AZITHROMYCIN [Concomitant]
     Active Substance: AZITHROMYCIN
     Dosage: MONDAY WEDNESDAY FRIDAY AND WITHOUT SUSPENDING
  10. ALBUTEROL [Concomitant]
     Active Substance: ALBUTEROL
     Dosage: .75 MLS PLUS 2 MLS OF SALINE SOLUTION
  11. MOMETASONE [Concomitant]
     Active Substance: MOMETASONE
     Dosage: 1 PUFF IN EACH NOSTRIL
  12. EPINASTINE [Concomitant]
     Active Substance: EPINASTINE
  13. PANCREATIN [Concomitant]
     Active Substance: PANCRELIPASE
     Dosage: 12 CAPSULES A DAY. 3 CAPSULES IN EACH FOOD AND IN SNACKS
  14. FOLIC ACID [Concomitant]
     Active Substance: FOLIC ACID
  15. SILDENAFIL [Concomitant]
     Active Substance: SILDENAFIL
     Dosage: TABLET 100MG, HALF TABLET
  16. SPIRONOLACTONE [Concomitant]
     Active Substance: SPIRONOLACTONE
  17. TRIMETHOPRIM [Concomitant]
     Active Substance: TRIMETHOPRIM
     Dosage: ONE UNIT
  18. TOBRAMYCIN [Concomitant]
     Active Substance: TOBRAMYCIN\TOBRAMYCIN SULFATE
     Route: 055
  19. SUCRALFATE [Concomitant]
     Active Substance: SUCRALFATE
     Dosage: HALF TABLET

REACTIONS (5)
  - Off label use [Unknown]
  - Bacterial disease carrier [Recovering/Resolving]
  - Respiratory disorder [Unknown]
  - Pseudomonas infection [Unknown]
  - Staphylococcal infection [Unknown]

NARRATIVE: CASE EVENT DATE: 20101201
